FAERS Safety Report 9945042 (Version 1)
Quarter: 2014Q1

REPORT INFORMATION
  Report Type: Report from Study
  Country: US (occurrence: US)
  Receive Date: 20140303
  Receipt Date: 20140303
  Transmission Date: 20141002
  Serious: No
  Sender: FDA-Public Use
  Company Number: US-ABBVIE-13P-163-1054220-00

PATIENT
  Age: 60 Year
  Sex: Female
  Weight: 88.53 kg

DRUGS (10)
  1. HUMIRA [Suspect]
     Indication: CROHN^S DISEASE
     Dates: start: 201211
  2. ASACOL [Concomitant]
     Indication: CROHN^S DISEASE
  3. CALCIUM [Concomitant]
     Indication: SUPPLEMENTATION THERAPY
  4. IRON [Concomitant]
     Indication: SUPPLEMENTATION THERAPY
  5. MAXIDE [Concomitant]
     Indication: HYPERTENSION
  6. MULTIVITAMIN [Concomitant]
     Indication: SUPPLEMENTATION THERAPY
  7. VITAMIN C [Concomitant]
     Indication: SUPPLEMENTATION THERAPY
  8. VITAMIN D [Concomitant]
     Indication: SUPPLEMENTATION THERAPY
  9. ZOLOFT [Concomitant]
     Indication: DEPRESSION
  10. OMEGA 3 [Concomitant]
     Indication: SUPPLEMENTATION THERAPY

REACTIONS (2)
  - Rash erythematous [Not Recovered/Not Resolved]
  - Tenderness [Not Recovered/Not Resolved]
